FAERS Safety Report 4598553-6 (Version None)
Quarter: 2005Q1

REPORT INFORMATION
  Report Type: 
  Country: None (occurrence: None)
  Receive Date: 20050304
  Receipt Date: 19960905
  Transmission Date: 20050727
  Serious: Yes (Life-Threatening)
  Sender: FDA-Public Use
  Company Number: US-MERCK-96061681

PATIENT
  Age: 75 Year
  Sex: Male

DRUGS (14)
  1. TIMOPTIC [Concomitant]
     Route: 047
  2. PROSCAR [Suspect]
     Indication: BENIGN PROSTATIC HYPERPLASIA
     Route: 048
     Dates: start: 19930101, end: 19960601
  3. IOPIDINE [Concomitant]
     Route: 065
  4. METOPROLOL [Concomitant]
     Route: 065
  5. ZOCOR [Concomitant]
     Route: 065
  6. RANITIDINE [Concomitant]
     Route: 065
  7. ASPIRIN [Concomitant]
     Route: 065
  8. ISOSORBIDE MONONITRATE [Concomitant]
     Route: 065
  9. CALCIUM (UNSPECIFIED) [Concomitant]
     Route: 065
  10. DIOVAN [Concomitant]
     Route: 065
  11. TRUSOPT [Concomitant]
     Route: 065
  12. XALATAN [Concomitant]
     Route: 065
  13. NASONEX [Concomitant]
     Route: 065
  14. NASAREL [Concomitant]
     Route: 065

REACTIONS (7)
  - DRUG INEFFECTIVE [None]
  - DRY MOUTH [None]
  - GINGIVAL DISORDER [None]
  - GYNAECOMASTIA [None]
  - HAIR GROWTH ABNORMAL [None]
  - MYOCARDIAL INFARCTION [None]
  - TOOTH LOSS [None]
